FAERS Safety Report 6983993-8 (Version None)
Quarter: 2010Q3

REPORT INFORMATION
  Report Type: 
  Country: None (occurrence: None)
  Receive Date: 20100915
  Receipt Date: 20090625
  Transmission Date: 20110219
  Serious: No
  Sender: FDA-Public Use
  Company Number: US-WYE-H09323209

PATIENT
  Sex: Female
  Weight: 113.5 kg

DRUGS (4)
  1. PRISTIQ [Suspect]
     Indication: DEPRESSION
     Route: 048
     Dates: start: 20090414, end: 20090427
  2. PRISTIQ [Suspect]
     Route: 048
     Dates: start: 20090428
  3. XANAX [Concomitant]
  4. NEXIUM [Concomitant]

REACTIONS (6)
  - AGITATION [None]
  - ANXIETY [None]
  - CRYING [None]
  - DEPRESSED MOOD [None]
  - DRUG INEFFECTIVE [None]
  - HOSTILITY [None]
